FAERS Safety Report 9813355 (Version 1)
Quarter: 2014Q1

REPORT INFORMATION
  Report Type: Spontaneous
  Country: GB (occurrence: None)
  Receive Date: 20140109
  Receipt Date: 20140109
  Transmission Date: 20141002
  Serious: Yes (Hospitalization, Disabling)
  Sender: FDA-Public Use
  Company Number: AUR-APL-2014-00109

PATIENT
  Age: 24 Year
  Sex: Male
  Weight: 92.25 kg

DRUGS (7)
  1. CIPROFLOXACIN {CIPROFLOXACIN} [Suspect]
     Indication: EPIDIDYMITIS
     Dosage: 750 MG, {250 MG, 3 IN 1 D}, ORAL
     Route: 048
  2. COENZYME Q10 {UBIDECARENONE} [Concomitant]
  3. MAGNESIUM {MAGNESIUM} [Concomitant]
  4. OMEGA-3 FISH OIL {OMEGA-3 FATTY ACIDS} [Concomitant]
  5. PROBIOTIC {BIFIDOBACTERIUM LACTIS} [Concomitant]
  6. SULPHUR {SULFUR} [Concomitant]
  7. VITAMIN D3 {COLECALCIFEROL} [Concomitant]

REACTIONS (28)
  - Arthralgia [None]
  - Myalgia [None]
  - Tendon pain [None]
  - Headache [None]
  - Influenza like illness [None]
  - Sensation of heaviness [None]
  - Photosensitivity reaction [None]
  - Pyrexia [None]
  - Asthenia [None]
  - Pain [None]
  - Dysstasia [None]
  - Musculoskeletal stiffness [None]
  - Palpitations [None]
  - Muscle twitching [None]
  - Insomnia [None]
  - Food aversion [None]
  - Connective tissue disorder [None]
  - Hypoaesthesia [None]
  - Paraesthesia [None]
  - Urticaria [None]
  - Dizziness [None]
  - Lymphadenopathy [None]
  - Abdominal pain upper [None]
  - Nervous system disorder [None]
  - Memory impairment [None]
  - Fatigue [None]
  - Dry mouth [None]
  - Fungal infection [None]
